FAERS Safety Report 8839811 (Version 1)
Quarter: 2012Q4

REPORT INFORMATION
  Report Type: Spontaneous
  Country: GB (occurrence: None)
  Receive Date: 20121011
  Receipt Date: 20121011
  Transmission Date: 20130627
  Serious: Yes (Other)
  Sender: FDA-Public Use
  Company Number: AUR-APL-2012-04297

PATIENT
  Age: 70 Year
  Sex: Male
  Weight: 90 kg

DRUGS (5)
  1. SIMVASTATIN (SIMVASTATIN) [Suspect]
     Indication: DRUG USE FOR UNKNOWN INDICATION
     Dates: start: 20120601
  2. :ATORVASTATIN(ATORVASTATIN) [Concomitant]
  3. :BETAHISTINE(BETAHISTINE) [Concomitant]
  4. :LACTULOSE(LACTULOSE) [Concomitant]
  5. :RAMIPRIL(RAMIPRIL) [Concomitant]

REACTIONS (1)
  - Myalgia [None]
